FAERS Safety Report 9266074 (Version 2)
Quarter: 2014Q2

REPORT INFORMATION
  Report Type: Spontaneous
  Country: CA (occurrence: CA)
  Receive Date: 20130501
  Receipt Date: 20140619
  Transmission Date: 20141212
  Serious: Yes (Hospitalization, Other)
  Sender: FDA-Public Use
  Company Number: CA-009507513-1304CAN009009

PATIENT
  Age: 62 Year
  Sex: Male
  Weight: 75 kg

DRUGS (9)
  1. VICTRELIS TRIPLE [Suspect]
     Indication: HEPATITIS C
     Dosage: 120 MICROGRAM, QW
     Route: 058
     Dates: start: 20120925, end: 2013
  2. VICTRELIS TRIPLE [Suspect]
     Dosage: 600 MG, QD
     Route: 048
     Dates: start: 20120925
  3. VICTRELIS TRIPLE [Suspect]
     Dosage: DAILY DOSE AS 2400 MG
     Route: 048
     Dates: start: 20120925
  4. VICTRELIS TRIPLE [Suspect]
     Dosage: 79 MCG(1 MG/KG), WEEKLY
     Route: 058
     Dates: start: 20130125
  5. VICTRELIS TRIPLE [Suspect]
     Dosage: 200 MG, BID
     Route: 048
     Dates: start: 20130125
  6. PEGETRON [Suspect]
     Indication: HEPATITIS C
     Dosage: CLEARCLICK PEN
     Route: 065
     Dates: end: 201303
  7. VICTRELIS [Suspect]
     Indication: HEPATITIS C
     Dosage: UNK
     Route: 048
     Dates: end: 201303
  8. TRAMADOL HYDROCHLORIDE [Concomitant]
     Dosage: 100 MG, QD
  9. LITHIUM CARBONATE [Concomitant]
     Indication: BIPOLAR DISORDER
     Dosage: 300 MG, TID

REACTIONS (8)
  - White blood cell count decreased [Recovering/Resolving]
  - Platelet count decreased [Recovering/Resolving]
  - Renal impairment [Recovering/Resolving]
  - Anaemia [Recovering/Resolving]
  - Adverse event [Unknown]
  - Transfusion [Unknown]
  - Hepatic cancer [Unknown]
  - Renal impairment [Unknown]
